FAERS Safety Report 12866034 (Version 1)
Quarter: 2016Q4

REPORT INFORMATION
  Report Type: Spontaneous
  Country: US (occurrence: US)
  Receive Date: 20161020
  Receipt Date: 20161020
  Transmission Date: 20170207
  Serious: No
  Sender: FDA-Public Use
  Company Number: US-009507513-1610USA002153

PATIENT
  Age: 51 Year
  Sex: Male

DRUGS (2)
  1. REMERON [Suspect]
     Active Substance: MIRTAZAPINE
     Indication: INSOMNIA
     Dosage: UNK
     Route: 048
     Dates: start: 20160820, end: 20160904
  2. LUNESTA [Suspect]
     Active Substance: ESZOPICLONE
     Indication: INSOMNIA
     Dosage: 2 MG, UNK
     Route: 048
     Dates: start: 201608

REACTIONS (5)
  - Burning sensation [Recovering/Resolving]
  - Sedation [Unknown]
  - Somnolence [Unknown]
  - Anxiety [Recovering/Resolving]
  - Neurological symptom [Unknown]

NARRATIVE: CASE EVENT DATE: 2016
